FAERS Safety Report 8927828 (Version 2)
Quarter: 2013Q2

REPORT INFORMATION
  Report Type: Report from Study
  Country: JP (occurrence: JP)
  Receive Date: 20121127
  Receipt Date: 20130617
  Transmission Date: 20140414
  Serious: Yes (Hospitalization, Other)
  Sender: FDA-Public Use
  Company Number: JP-VERTEX PHARMACEUTICAL INC.-AE-2012-005508

PATIENT
  Age: 72 Year
  Sex: Male

DRUGS (9)
  1. VX-950 (TELAPREVIR) [Suspect]
     Indication: CHRONIC HEPATITIS C
     Dosage: 2250 MG, QD
     Route: 048
     Dates: start: 20120208
  2. VX-950 (TELAPREVIR) [Suspect]
     Dosage: 2250 MG, QD
     Route: 048
     Dates: start: 20120222, end: 20120411
  3. REBETOL [Suspect]
     Indication: CHRONIC HEPATITIS C
     Dosage: 800 MG, QD
     Route: 048
     Dates: start: 20120208
  4. REBETOL [Suspect]
     Dosage: 200 MG, QD
     Route: 048
  5. REBETOL [Suspect]
     Dosage: 800 MG, QD
     Route: 048
     Dates: start: 20120222, end: 20120410
  6. REBETOL [Suspect]
     Dosage: 200 MG, QD
     Route: 048
     Dates: start: 20120411, end: 20120411
  7. PEGINTRON [Suspect]
     Indication: CHRONIC HEPATITIS C
     Dosage: 1.5 ?G/KG
     Route: 058
     Dates: start: 20120208
  8. PEGINTRON [Suspect]
     Dosage: 1.5 ?G/KG
     Route: 058
     Dates: start: 20120222, end: 20120404
  9. PEGINTRON [Suspect]
     Dosage: 0.75 ?G/KG
     Route: 058
     Dates: start: 20120411, end: 20120411

REACTIONS (2)
  - Renal failure acute [Recovered/Resolved]
  - Haemoglobin decreased [Recovered/Resolved]
